FAERS Safety Report 6102211-6 (Version None)
Quarter: 2009Q1

REPORT INFORMATION
  Report Type: 
  Country: None (occurrence: None)
  Receive Date: 20090303
  Receipt Date: 20090303
  Transmission Date: 20090719
  Serious: Yes (Other)
  Sender: FDA-Public Use
  Company Number: None

PATIENT
  Age: 54 Year
  Sex: Female
  Weight: 58.0604 kg

DRUGS (11)
  1. LEVAQUIN [Suspect]
     Indication: PYREXIA
     Dosage: PO
     Route: 048
     Dates: start: 20090224, end: 20090224
  2. CLONAZEPAM [Concomitant]
  3. FLUDROCORTISONE [Concomitant]
  4. DIPHENYDRAMINE HCL [Concomitant]
  5. LEVOTHYROXINE [Concomitant]
  6. DEXAMETHASONE [Concomitant]
  7. FAMOTIDINE [Concomitant]
  8. PREMARIN [Concomitant]
  9. FLUOXETINE [Concomitant]
  10. SINGULAIR [Concomitant]
  11. MITOTANE [Concomitant]

REACTIONS (1)
  - NEUROPATHY PERIPHERAL [None]
